FAERS Safety Report 25579863 (Version 1)
Quarter: 2025Q3

REPORT INFORMATION
  Report Type: Spontaneous
  Country: US (occurrence: US)
  Receive Date: 20250718
  Receipt Date: 20250718
  Transmission Date: 20251021
  Serious: No
  Sender: NOVO NORDISK
  Company Number: US-NOVOPROD-1310294

PATIENT
  Age: 75 Year
  Sex: Male

DRUGS (1)
  1. WEGOVY [Suspect]
     Active Substance: SEMAGLUTIDE
     Indication: Product used for unknown indication
     Route: 058

REACTIONS (4)
  - Pollakiuria [Not Recovered/Not Resolved]
  - Insomnia [Unknown]
  - Dry mouth [Unknown]
  - Constipation [Unknown]

NARRATIVE: CASE EVENT DATE: 20240805
